FAERS Safety Report 4335044-1 (Version None)
Quarter: 2004Q2

REPORT INFORMATION
  Report Type: 
  Country: None (occurrence: None)
  Receive Date: 20040408
  Receipt Date: 20040315
  Transmission Date: 20050107
  Serious: Yes (Hospitalization)
  Sender: FDA-Public Use
  Company Number: ZA-GLAXOSMITHKLINE-B0326718A

PATIENT
  Age: 5 Year
  Sex: Female
  Weight: 22 kg

DRUGS (3)
  1. LAMICTAL [Suspect]
     Indication: EPILEPSY
     Dosage: 25MG TWICE PER DAY
     Route: 048
     Dates: start: 20030901, end: 20040315
  2. VALPROATE SODIUM [Concomitant]
     Indication: EPILEPSY
     Dosage: 160MG THREE TIMES PER DAY
     Route: 048
     Dates: start: 19990101
  3. MONTELUKAST [Concomitant]
     Indication: ASTHMA
     Dosage: 1U AT NIGHT
     Route: 048

REACTIONS (3)
  - DIARRHOEA [None]
  - GASTROENTERITIS [None]
  - STATUS EPILEPTICUS [None]
